FAERS Safety Report 19714543 (Version 3)
Quarter: 2022Q2

REPORT INFORMATION
  Report Type: Spontaneous
  Country: GR (occurrence: GR)
  Receive Date: 20210818
  Receipt Date: 20220624
  Transmission Date: 20220721
  Serious: Yes (Hospitalization, Other)
  Sender: FDA-Public Use
  Company Number: GR-TAR-2021-00017

PATIENT
  Age: 65 Year
  Sex: Female

DRUGS (4)
  1. MIRTAZAPINE [Suspect]
     Active Substance: MIRTAZAPINE
     Indication: Progressive multifocal leukoencephalopathy
     Dosage: UNK
     Route: 065
  2. MIRTAZAPINE [Suspect]
     Active Substance: MIRTAZAPINE
     Dosage: 60 MILLIGRAM, ONCE A DAY
     Route: 065
  3. ETANERCEPT [Suspect]
     Active Substance: ETANERCEPT
     Indication: Psoriatic arthropathy
     Dosage: UNK
     Route: 065
  4. HYDROXYCHLOROQUINE [Suspect]
     Active Substance: HYDROXYCHLOROQUINE
     Indication: Psoriatic arthropathy
     Dosage: UNK
     Route: 065

REACTIONS (11)
  - Immune reconstitution inflammatory syndrome [Recovering/Resolving]
  - Systemic lupus erythematosus [Recovering/Resolving]
  - Extensor plantar response [Unknown]
  - Visual impairment [Unknown]
  - Personality change [Unknown]
  - Apraxia [Unknown]
  - Hemianopia homonymous [Unknown]
  - Progressive multifocal leukoencephalopathy [Unknown]
  - Off label use [Unknown]
  - Drug ineffective [Unknown]
  - JC virus infection [Unknown]
